FAERS Safety Report 23750715 (Version 1)
Quarter: 2024Q2

REPORT INFORMATION
  Report Type: Spontaneous
  Country: CA (occurrence: CA)
  Receive Date: 20240417
  Receipt Date: 20240417
  Transmission Date: 20240716
  Serious: Yes (Death, Life-Threatening, Hospitalization, Other)
  Sender: FDA-Public Use
  Company Number: CA-TEVA-VS-3181958

PATIENT
  Age: 31 Year
  Sex: Female

DRUGS (6)
  1. METHYLPREDNISOLONE SODIUM SUCCINATE [Suspect]
     Active Substance: METHYLPREDNISOLONE SODIUM SUCCINATE
     Indication: Haemophagocytic lymphohistiocytosis
     Route: 042
  2. METHYLPREDNISOLONE SODIUM SUCCINATE [Suspect]
     Active Substance: METHYLPREDNISOLONE SODIUM SUCCINATE
     Indication: Haemophagocytic lymphohistiocytosis
     Route: 042
  3. METHYLPREDNISOLONE SODIUM SUCCINATE [Suspect]
     Active Substance: METHYLPREDNISOLONE SODIUM SUCCINATE
     Indication: Haemophagocytic lymphohistiocytosis
     Route: 042
  4. METHYLPREDNISOLONE SODIUM SUCCINATE [Suspect]
     Active Substance: METHYLPREDNISOLONE SODIUM SUCCINATE
     Indication: Haemophagocytic lymphohistiocytosis
     Route: 042
  5. METHYLPREDNISOLONE SODIUM SUCCINATE [Suspect]
     Active Substance: METHYLPREDNISOLONE SODIUM SUCCINATE
     Indication: Haemophagocytic lymphohistiocytosis
     Route: 042
  6. ANAKINRA [Concomitant]
     Active Substance: ANAKINRA
     Indication: Haemophagocytic lymphohistiocytosis
     Dosage: TIME INTERVAL: 0.33333333 DAYS
     Route: 058

REACTIONS (6)
  - Cardiac arrest [Fatal]
  - Acute lung injury [Fatal]
  - Disseminated aspergillosis [Fatal]
  - Haemoptysis [Fatal]
  - Tracheobronchitis [Fatal]
  - Off label use [Fatal]
